FAERS Safety Report 18579707 (Version 1)
Quarter: 2020Q4

REPORT INFORMATION
  Report Type: Other
  Country: BR (occurrence: BR)
  Receive Date: 20201204
  Receipt Date: 20201204
  Transmission Date: 20210114
  Serious: Yes (Other)
  Sender: FDA-Public Use
  Company Number: BR-ROCHE-2714667

PATIENT
  Sex: Male
  Weight: 63 kg

DRUGS (2)
  1. OCREVUS [Suspect]
     Active Substance: OCRELIZUMAB
     Dosage: SUBSEQUENT DOSE ON 11-MAY-2020
     Route: 065
     Dates: start: 20191030
  2. OCREVUS [Suspect]
     Active Substance: OCRELIZUMAB
     Indication: MULTIPLE SCLEROSIS
     Dosage: 300 MG/10ML
     Route: 065
     Dates: start: 20191017

REACTIONS (3)
  - Drug ineffective [Unknown]
  - Hemiparesis [Not Recovered/Not Resolved]
  - Muscle atrophy [Not Recovered/Not Resolved]
